FAERS Safety Report 14719206 (Version 1)
Quarter: 2018Q2

REPORT INFORMATION
  Report Type: Spontaneous
  Country: TW (occurrence: TW)
  Receive Date: 20180405
  Receipt Date: 20180405
  Transmission Date: 20180711
  Serious: Yes (Other)
  Sender: FDA-Public Use
  Company Number: TW-SUN PHARMACEUTICAL INDUSTRIES LTD-2018RR-169214

PATIENT
  Age: 55 Year
  Sex: Female

DRUGS (6)
  1. GEMCITABINE [Suspect]
     Active Substance: GEMCITABINE\GEMCITABINE HYDROCHLORIDE
     Dosage: 400 MG/M2, 1/WEEK
     Route: 065
     Dates: start: 201012, end: 201102
  2. FLUOROURACIL. [Suspect]
     Active Substance: FLUOROURACIL
     Indication: PANCREATIC CARCINOMA
     Dosage: 3000 MG/M2,
     Route: 042
     Dates: start: 201009, end: 201012
  3. CALCIUM FOLINAT [Suspect]
     Active Substance: LEUCOVORIN CALCIUM
     Indication: PANCREATIC CARCINOMA
     Dosage: 150 MG/M2, ON D1-2 BIWEEKLY
     Route: 065
     Dates: start: 201009, end: 201012
  4. GEMCITABINE [Suspect]
     Active Substance: GEMCITABINE\GEMCITABINE HYDROCHLORIDE
     Dosage: 800 MG/M2, ON D1
     Route: 065
     Dates: start: 201009, end: 201012
  5. GEMCITABINE [Suspect]
     Active Substance: GEMCITABINE\GEMCITABINE HYDROCHLORIDE
     Indication: PANCREATIC CARCINOMA
     Dosage: 10 MG/M2/MIN, FIXED-DOSE RATE
     Route: 065
     Dates: start: 201009, end: 201012
  6. OXALIPLATIN. [Suspect]
     Active Substance: OXALIPLATIN
     Indication: PANCREATIC CARCINOMA
     Dosage: 85 MG/M2 ON D1
     Route: 042
     Dates: start: 201009, end: 201012

REACTIONS (8)
  - Diarrhoea [Unknown]
  - Mucosal inflammation [Unknown]
  - Leukopenia [Unknown]
  - Nausea [Unknown]
  - Anaemia [Unknown]
  - Peripheral sensory neuropathy [Unknown]
  - Vomiting [Unknown]
  - Drug effect incomplete [Unknown]
